FAERS Safety Report 7717624-6 (Version None)
Quarter: 2011Q3

REPORT INFORMATION
  Report Type: 
  Country: None (occurrence: None)
  Receive Date: 20110830
  Receipt Date: 20110830
  Transmission Date: 20111222
  Serious: Yes (Hospitalization)
  Sender: FDA-Public Use
  Company Number: None

PATIENT
  Age: 83 Year
  Sex: Female

DRUGS (13)
  1. WARFARIN SODIUM [Concomitant]
     Dosage: 7.5MG
     Route: 048
  2. ZOCOR [Concomitant]
  3. NORVASC [Concomitant]
  4. WARFARIN SODIUM [Suspect]
     Indication: ATRIAL FIBRILLATION
     Dosage: 5MG
     Route: 048
  5. NORCONEURONTIN [Concomitant]
  6. TOPROL-XL [Concomitant]
  7. GLUCOPHAGE [Concomitant]
  8. ACTOS [Concomitant]
  9. ANTIBIOTIC [Concomitant]
  10. PLETAL [Concomitant]
  11. LISINOPRIL [Concomitant]
  12. SYNTHROID [Concomitant]
  13. FERROUS SULFATE TAB [Concomitant]

REACTIONS (1)
  - COAGULOPATHY [None]
